FAERS Safety Report 22221595 (Version 2)
Quarter: 2024Q4

REPORT INFORMATION
  Report Type: Spontaneous
  Country: VN (occurrence: VN)
  Receive Date: 20230418
  Receipt Date: 20241121
  Transmission Date: 20250115
  Serious: Yes (Other)
  Sender: ROCHE
  Company Number: VN-ROCHE-3330833

PATIENT
  Sex: Female

DRUGS (7)
  1. PERJETA [Suspect]
     Active Substance: PERTUZUMAB
     Indication: Breast cancer
     Route: 065
  2. HERCEPTIN [Suspect]
     Active Substance: TRASTUZUMAB
     Indication: Breast cancer
     Route: 065
  3. TAMOXIFEN [Concomitant]
     Active Substance: TAMOXIFEN
     Indication: Breast cancer
     Route: 065
     Dates: start: 201701, end: 201903
  4. LETROZOLE [Concomitant]
     Active Substance: LETROZOLE
  5. VINORELBINE [Concomitant]
     Active Substance: VINORELBINE TARTRATE
  6. PACLITAXEL [Concomitant]
     Active Substance: PACLITAXEL
  7. EXEMESTANE [Concomitant]
     Active Substance: EXEMESTANE

REACTIONS (3)
  - Breast cancer recurrent [Unknown]
  - Malignant neoplasm progression [Unknown]
  - Off label use [Unknown]
